FAERS Safety Report 10228748 (Version 1)
Quarter: 2014Q2

REPORT INFORMATION
  Report Type: Spontaneous
  Country: US (occurrence: US)
  Receive Date: 20140610
  Receipt Date: 20140610
  Transmission Date: 20141212
  Serious: Yes (Other)
  Sender: FDA-Public Use
  Company Number: US-FRI-1000067924

PATIENT
  Age: 52 Year
  Sex: Female
  Weight: 73 kg

DRUGS (11)
  1. BYSTOLIC [Suspect]
     Dates: end: 2014
  2. BYSTOLIC [Suspect]
     Dosage: 1/2 TABLET ONCE DAILY
     Dates: start: 2014
  3. ENOXAPARIN [Suspect]
     Indication: ANTICOAGULANT THERAPY
     Dosage: 120 MG
     Route: 058
     Dates: start: 201402
  4. STEROID NOS [Suspect]
  5. BENICAR [Suspect]
     Dates: end: 2014
  6. BENICAR [Suspect]
     Dosage: 1/2 TABLET ONCE DAILY
     Dates: start: 2014
  7. NORCO [Concomitant]
     Indication: PAIN
  8. SOMA [Concomitant]
     Indication: MUSCLE SPASMS
  9. LORAZEPAM [Concomitant]
     Indication: ANXIETY
  10. AMBIEN [Concomitant]
     Indication: INSOMNIA
  11. DOXYCYCLINE HYCLATE [Concomitant]
     Indication: INFECTION PROPHYLAXIS
     Dosage: 200 MG

REACTIONS (14)
  - Pulmonary embolism [Unknown]
  - Bronchitis [Unknown]
  - Weight increased [Recovered/Resolved]
  - Blood pressure decreased [Recovering/Resolving]
  - Hot flush [Not Recovered/Not Resolved]
  - Fall [Recovered/Resolved]
  - Contusion [Unknown]
  - Nerve compression [Not Recovered/Not Resolved]
  - Muscle spasms [Not Recovered/Not Resolved]
  - Chest pain [Not Recovered/Not Resolved]
  - Dyspnoea [Unknown]
  - Dizziness [Recovering/Resolving]
  - Asthenia [Not Recovered/Not Resolved]
  - Nausea [Not Recovered/Not Resolved]
